FAERS Safety Report 7075102-4 (Version None)
Quarter: 2010Q4

REPORT INFORMATION
  Report Type: 
  Country: None (occurrence: None)
  Receive Date: 20101029
  Receipt Date: 20100416
  Transmission Date: 20110411
  Serious: No
  Sender: FDA-Public Use
  Company Number: US-WYE-H14577710

PATIENT
  Age: 72 Year
  Sex: Female
  Weight: 63.56 kg

DRUGS (3)
  1. ALAVERT [Suspect]
     Indication: SEASONAL ALLERGY
     Route: 048
     Dates: start: 20100402, end: 20100405
  2. ALAVERT [Suspect]
     Indication: RESPIRATORY TRACT CONGESTION
  3. ALAVERT [Suspect]
     Indication: NASAL DRYNESS

REACTIONS (4)
  - CONDITION AGGRAVATED [None]
  - DRUG INEFFECTIVE [None]
  - NASAL DRYNESS [None]
  - RESPIRATORY TRACT CONGESTION [None]
